FAERS Safety Report 14660841 (Version 2)
Quarter: 2018Q1

REPORT INFORMATION
  Report Type: Spontaneous
  Country: JP (occurrence: JP)
  Receive Date: 20180320
  Receipt Date: 20180323
  Transmission Date: 20180509
  Serious: Yes (Other)
  Sender: FDA-Public Use
  Company Number: JP-SA-2018SA034434

PATIENT
  Age: 79 Year
  Sex: Male

DRUGS (5)
  1. INSULIN [Concomitant]
     Active Substance: INSULIN NOS
     Indication: DIABETES MELLITUS
     Route: 065
  2. LYXUMIA [Suspect]
     Active Substance: LIXISENATIDE
     Indication: HYPERGLYCAEMIA
     Route: 058
     Dates: start: 20151216
  3. LYXUMIA [Suspect]
     Active Substance: LIXISENATIDE
     Indication: OBESITY
     Route: 058
     Dates: start: 20151216
  4. LANTUS [Concomitant]
     Active Substance: INSULIN GLARGINE
     Route: 058
     Dates: start: 20151211
  5. AZILVA [Concomitant]
     Active Substance: AZILSARTAN KAMEDOXOMIL
     Route: 065
     Dates: start: 20160325

REACTIONS (2)
  - Amylase increased [Recovered/Resolved]
  - Pancreatitis acute [Recovered/Resolved]

NARRATIVE: CASE EVENT DATE: 20170616
